FAERS Safety Report 21859648 (Version 1)
Quarter: 2023Q1

REPORT INFORMATION
  Report Type: Spontaneous
  Country: CA (occurrence: CA)
  Receive Date: 20230113
  Receipt Date: 20230113
  Transmission Date: 20230418
  Serious: Yes (Life-Threatening, Hospitalization, Other)
  Sender: FDA-Public Use
  Company Number: CA-PFIZER INC-202300014385

PATIENT
  Age: 77 Year
  Sex: Female
  Weight: 130 kg

DRUGS (23)
  1. CARBOPLATIN [Suspect]
     Active Substance: CARBOPLATIN
     Indication: Metastases to bone
     Dosage: 760 MG
     Route: 042
  2. CARBOPLATIN [Suspect]
     Active Substance: CARBOPLATIN
     Indication: Invasive ductal breast carcinoma
  3. TAXOL [Suspect]
     Active Substance: PACLITAXEL
     Indication: Metastases to bone
     Dosage: 195 MG
     Route: 042
  4. TAXOL [Suspect]
     Active Substance: PACLITAXEL
     Indication: Invasive ductal breast carcinoma
  5. ACETAMINOPHEN [Concomitant]
     Active Substance: ACETAMINOPHEN
  6. ASPIRIN [Concomitant]
     Active Substance: ASPIRIN
     Route: 065
  7. CALCIUM CARBONATE [Concomitant]
     Active Substance: CALCIUM CARBONATE
  8. ATENOLOL [Concomitant]
     Active Substance: ATENOLOL
  9. CALCIUM [Concomitant]
     Active Substance: CALCIUM
  10. CHOLECALCIFEROL [Concomitant]
     Active Substance: CHOLECALCIFEROL
  11. DEXAMETHASONE [Concomitant]
     Active Substance: DEXAMETHASONE
  12. DIMENHYDRINATE [Concomitant]
     Active Substance: DIMENHYDRINATE
  13. ENALAPRIL [Concomitant]
     Active Substance: ENALAPRIL
  14. LIDOCAINE [Concomitant]
     Active Substance: LIDOCAINE
  15. METOCLOPRAMIDE [Concomitant]
     Active Substance: METOCLOPRAMIDE
  16. MORPHINE [Concomitant]
     Active Substance: MORPHINE
  17. NYSTATIN [Concomitant]
     Active Substance: NYSTATIN
  18. ONDANSETRON [Concomitant]
     Active Substance: ONDANSETRON
  19. PREGABALIN [Concomitant]
     Active Substance: PREGABALIN
  20. ROSUVASTATIN [Concomitant]
     Active Substance: ROSUVASTATIN
     Route: 065
  21. SENOKOT [Concomitant]
     Active Substance: SENNOSIDES
  22. TRAVOPROST [Concomitant]
     Active Substance: TRAVOPROST
  23. ZOLEDRONIC ACID [Concomitant]
     Active Substance: ZOLEDRONIC ACID

REACTIONS (8)
  - Acute kidney injury [Recovered/Resolved]
  - Colitis [Recovered/Resolved]
  - Escherichia infection [Recovered/Resolved]
  - Febrile neutropenia [Recovered/Resolved]
  - Fluid replacement [Recovered/Resolved]
  - Sepsis [Recovered/Resolved]
  - Transfusion [Recovered/Resolved]
  - Urinary tract infection [Recovered/Resolved]
